FAERS Safety Report 23800304 (Version 1)
Quarter: 2024Q2

REPORT INFORMATION
  Report Type: Spontaneous
  Country: CN (occurrence: CN)
  Receive Date: 20240430
  Receipt Date: 20240430
  Transmission Date: 20240716
  Serious: Yes (Hospitalization)
  Sender: FDA-Public Use
  Company Number: CN-Jiangsu Hansoh Pharmaceutical Co., Ltd-2156325

PATIENT
  Age: 80 Year
  Sex: Male
  Weight: 44 kg

DRUGS (1)
  1. GEMCITABINE HYDROCHLORIDE [Suspect]
     Active Substance: GEMCITABINE HYDROCHLORIDE
     Indication: Lung neoplasm malignant
     Route: 050
     Dates: start: 20240410, end: 20240410

REACTIONS (6)
  - Pyrexia [Recovering/Resolving]
  - Haemoptysis [Recovering/Resolving]
  - Tachypnoea [Recovering/Resolving]
  - Productive cough [Recovering/Resolving]
  - Tremor [Recovering/Resolving]
  - Cough [Recovering/Resolving]

NARRATIVE: CASE EVENT DATE: 20240410
